FAERS Safety Report 8713554 (Version 3)
Quarter: 2013Q3

REPORT INFORMATION
  Report Type: Spontaneous
  Country: JP (occurrence: None)
  Receive Date: 20120724
  Receipt Date: 20130815
  Transmission Date: 20140515
  Serious: Yes (Hospitalization, Other)
  Sender: FDA-Public Use
  Company Number: ADR-2010-8632

PATIENT
  Age: 42 Year
  Sex: Male

DRUGS (1)
  1. BACLOFEN [Suspect]
     Indication: MUSCLE SPASTICITY

REACTIONS (11)
  - Muscle spasticity [None]
  - Muscle spasms [None]
  - Postoperative adhesion [None]
  - Device breakage [None]
  - Device damage [None]
  - Device connection issue [None]
  - Device failure [None]
  - General physical health deterioration [None]
  - Drug withdrawal syndrome [None]
  - Gait spastic [None]
  - Dystonia [None]
